FAERS Safety Report 7959171-2 (Version None)
Quarter: 2011Q4

REPORT INFORMATION
  Report Type: 
  Country: None (occurrence: None)
  Receive Date: 20111206
  Receipt Date: 20110218
  Transmission Date: 20120403
  Serious: No
  Sender: FDA-Public Use
  Company Number: US-ABBOTT-11P-163-0706670-00

PATIENT
  Sex: Female
  Weight: 81.72 kg

DRUGS (1)
  1. OMNICEF [Suspect]
     Indication: RESPIRATORY TRACT CONGESTION
     Dates: start: 20060101, end: 20060101

REACTIONS (1)
  - RASH [None]
